FAERS Safety Report 4790246-5 (Version None)
Quarter: 2005Q3

REPORT INFORMATION
  Report Type: 
  Country: None (occurrence: None)
  Receive Date: 20050914
  Receipt Date: 20050629
  Transmission Date: 20060218
  Serious: Yes (Death)
  Sender: FDA-Public Use
  Company Number: 062-20785-05060378

PATIENT
  Age: 67 Year
  Sex: Female

DRUGS (5)
  1. THALIDOMIDE  - PHARMION (THALIDOMIDE) (50 MILLIGRAM, CAPSULES) [Suspect]
     Indication: MULTIPLE MYELOMA
     Dosage: SEE IMAGE
     Route: 048
     Dates: start: 20050301, end: 20050101
  2. THALIDOMIDE  - PHARMION (THALIDOMIDE) (50 MILLIGRAM, CAPSULES) [Suspect]
     Indication: MULTIPLE MYELOMA
     Dosage: SEE IMAGE
     Route: 048
     Dates: start: 20050101, end: 20050601
  3. ANTIHYPERTENSIVES (ANTIHYPERTENSIVES) [Concomitant]
  4. ANTICOAGULATION AGENT [Concomitant]
  5. BISPHOSPHONATES (BISPHOSPHONATES) [Concomitant]

REACTIONS (3)
  - DEATH [None]
  - DISEASE PROGRESSION [None]
  - RENAL FAILURE [None]
